FAERS Safety Report 25984559 (Version 1)
Quarter: 2025Q4

REPORT INFORMATION
  Report Type: Spontaneous
  Country: US (occurrence: US)
  Receive Date: 20251031
  Receipt Date: 20251031
  Transmission Date: 20260117
  Serious: Yes (Other)
  Sender: CHIMERIX
  Company Number: US-CHIMERIX-US-CHI-25-000402

PATIENT

DRUGS (1)
  1. MODEYSO [Suspect]
     Active Substance: DORDAVIPRONE
     Indication: Brain stem glioma
     Dosage: UNK
     Dates: start: 20250901, end: 2025

REACTIONS (5)
  - Hemiparesis [Unknown]
  - Disease progression [Unknown]
  - Nausea [Unknown]
  - Vomiting [Unknown]
  - Amylase increased [Unknown]
